FAERS Safety Report 11349468 (Version 1)
Quarter: 2015Q3

REPORT INFORMATION
  Report Type: Report from Study
  Country: US (occurrence: US)
  Receive Date: 20150807
  Receipt Date: 20150807
  Transmission Date: 20151125
  Serious: No
  Sender: FDA-Public Use
  Company Number: PHEH2015US008382

PATIENT
  Sex: Female

DRUGS (1)
  1. TEKAMLO [Suspect]
     Active Substance: ALISKIREN HEMIFUMARATE\AMLODIPINE BESYLATE
     Indication: PRODUCT USED FOR UNKNOWN INDICATION
     Dosage: UNK
     Route: 048

REACTIONS (2)
  - Hypertension [Unknown]
  - Blood cholesterol [Unknown]
